FAERS Safety Report 26083217 (Version 1)
Quarter: 2025Q4

REPORT INFORMATION
  Report Type: Spontaneous
  Country: US (occurrence: US)
  Receive Date: 20251124
  Receipt Date: 20251124
  Transmission Date: 20260118
  Serious: Yes (Death, Other)
  Sender: AMGEN
  Company Number: US-AMGEN-USASP2025228775

PATIENT

DRUGS (1)
  1. PREDNISONE [Suspect]
     Active Substance: PREDNISONE
     Indication: Product used for unknown indication
     Dosage: UNK [1 MG/KG BODY WEIGHT OF PREDNISONE OR EQUIVALENT]
     Route: 065

REACTIONS (9)
  - Death [Fatal]
  - Cytomegalovirus infection reactivation [Unknown]
  - Pneumonia [Unknown]
  - Acute graft versus host disease [Unknown]
  - Chronic graft versus host disease [Unknown]
  - Cytomegalovirus infection [Unknown]
  - Cytomegalovirus viraemia [Unknown]
  - Gastrointestinal disorder [Unknown]
  - Lymphopenia [Unknown]
